FAERS Safety Report 4311159-9 (Version None)
Quarter: 2004Q1

REPORT INFORMATION
  Report Type: 
  Country: None (occurrence: None)
  Receive Date: 20040302
  Receipt Date: 20040223
  Transmission Date: 20041129
  Serious: Yes (Hospitalization)
  Sender: FDA-Public Use
  Company Number: 200402580

PATIENT
  Age: 8 Year
  Sex: Female
  Weight: 21 kg

DRUGS (4)
  1. PARACETAMOL PRODUCT (PARACETAMOL) [Suspect]
     Indication: RESPIRATORY TRACT INFECTION
     Dosage: PO
     Route: 048
  2. AMOXICILLIN [Suspect]
     Indication: RESPIRATORY TRACT INFECTION
  3. FUROSEMIDE [Suspect]
     Indication: RESPIRATORY TRACT INFECTION
  4. HERB MEDICINE [Suspect]
     Indication: RESPIRATORY TRACT INFECTION

REACTIONS (3)
  - HYPERTENSION [None]
  - NEPHROTIC SYNDROME [None]
  - RENAL FAILURE [None]
